FAERS Safety Report 20709482 (Version 1)
Quarter: 2022Q2

REPORT INFORMATION
  Report Type: Spontaneous
  Country: US (occurrence: None)
  Receive Date: 20220413
  Receipt Date: 20220413
  Transmission Date: 20220721
  Serious: Yes (Life-Threatening)
  Sender: FDA-Public Use
  Company Number: None

PATIENT
  Age: 18 Year
  Sex: Male
  Weight: 81 kg

DRUGS (1)
  1. XOFLUZA [Suspect]
     Active Substance: BALOXAVIR MARBOXIL
     Indication: Influenza
     Dosage: OTHER QUANTITY : 1 TABLET(S);?OTHER FREQUENCY : ONE TIME ONLY;?
     Route: 048
     Dates: start: 20220412, end: 20220412

REACTIONS (4)
  - Anaphylactic shock [None]
  - Drug hypersensitivity [None]
  - Urticaria [None]
  - Lip swelling [None]

NARRATIVE: CASE EVENT DATE: 20220412
